FAERS Safety Report 10101104 (Version 1)
Quarter: 2014Q2

REPORT INFORMATION
  Report Type: Spontaneous
  Country: CA (occurrence: CA)
  Receive Date: 20140424
  Receipt Date: 20140424
  Transmission Date: 20141212
  Serious: Yes (Death)
  Sender: FDA-Public Use
  Company Number: CA-AMGEN-CANSP2014028589

PATIENT
  Age: 67 Year
  Sex: Male

DRUGS (1)
  1. XGEVA [Suspect]
     Indication: LUNG CANCER METASTATIC
     Dosage: 120 MG/1.7 ML, UNK
     Route: 065
     Dates: start: 20131127, end: 20140406

REACTIONS (1)
  - Death [Fatal]
